FAERS Safety Report 4263879-2 (Version None)
Quarter: 2004Q1

REPORT INFORMATION
  Report Type: 
  Country: None (occurrence: None)
  Receive Date: 20040102
  Receipt Date: 20031216
  Transmission Date: 20041129
  Serious: Yes (Hospitalization)
  Sender: FDA-Public Use
  Company Number: 2003-111148-NL

PATIENT
  Age: 69 Year
  Sex: Male

DRUGS (7)
  1. MIRTAZAPINE [Suspect]
     Indication: DEPRESSION
     Dosage: 30 MG/45 MG/30 MG ORAL
     Route: 048
     Dates: start: 20030701, end: 20030801
  2. MIRTAZAPINE [Suspect]
     Indication: DEPRESSION
     Dosage: 30 MG/45 MG/30 MG ORAL
     Route: 048
     Dates: start: 20030801, end: 20031101
  3. MIRTAZAPINE [Suspect]
     Indication: DEPRESSION
     Dosage: 30 MG/45 MG/30 MG ORAL
     Route: 048
     Dates: start: 20031101, end: 20031215
  4. SIMVASTATIN [Concomitant]
  5. SERTRALINE HCL [Concomitant]
  6. ACETYLSALICYLIC ACID SRT [Concomitant]
  7. PIPAMPERONE [Concomitant]

REACTIONS (2)
  - BLOOD CREATINE PHOSPHOKINASE INCREASED [None]
  - MYALGIA [None]
